FAERS Safety Report 23540351 (Version 1)
Quarter: 2024Q1

REPORT INFORMATION
  Report Type: Spontaneous
  Country: US (occurrence: US)
  Receive Date: 20240219
  Receipt Date: 20240219
  Transmission Date: 20240409
  Serious: No
  Sender: FDA-Public Use
  Company Number: US-Stemline Therapeutics, Inc.-2023ST004562

PATIENT
  Age: 75 Year
  Sex: Female

DRUGS (14)
  1. ORSERDU [Suspect]
     Active Substance: ELACESTRANT
     Indication: Product used for unknown indication
     Route: 048
     Dates: start: 20231109
  2. ACETAMINOPHEN [Concomitant]
     Active Substance: ACETAMINOPHEN
  3. ALBUTEROL [Concomitant]
     Active Substance: ALBUTEROL
  4. ATORVASTATIN [Concomitant]
     Active Substance: ATORVASTATIN
  5. CALCIUM CARBONATE [Concomitant]
     Active Substance: CALCIUM CARBONATE
  6. HYDRALAZINE [Concomitant]
     Active Substance: HYDRALAZINE HYDROCHLORIDE
  7. HYDROCORTISONE [Concomitant]
     Active Substance: HYDROCORTISONE
  8. LOSARTAN [Concomitant]
     Active Substance: LOSARTAN
  9. METHYLPREDNISOLONE [Concomitant]
     Active Substance: METHYLPREDNISOLONE
  10. PREDNISOLONE [Concomitant]
     Active Substance: PREDNISOLONE
  11. PROLENSA [Concomitant]
     Active Substance: BROMFENAC SODIUM
  12. SYMBICORT [Concomitant]
     Active Substance: BUDESONIDE\FORMOTEROL FUMARATE DIHYDRATE
  13. VITAMIN D [Concomitant]
     Active Substance: VITAMIN D NOS
  14. XGEVA [Concomitant]
     Active Substance: DENOSUMAB

REACTIONS (1)
  - Myalgia [Recovering/Resolving]
